FAERS Safety Report 26010366 (Version 1)
Quarter: 2025Q4

REPORT INFORMATION
  Report Type: Spontaneous
  Country: EU (occurrence: EU)
  Receive Date: 20251107
  Receipt Date: 20251107
  Transmission Date: 20260117
  Serious: Yes (Life-Threatening, Hospitalization, Other)
  Sender: BAUSCH AND LOMB
  Company Number: EU-BAUSCH-BH-2025-019765

PATIENT
  Age: 4 Decade
  Sex: Female

DRUGS (5)
  1. DEXAMETHASONE [Suspect]
     Active Substance: DEXAMETHASONE
     Indication: Plasma cell myeloma
     Dosage: CVD CHEMOTHERAPY: CONSISTING OF FOUR SERIES
     Route: 065
  2. CYCLOPHOSPHAMIDE [Suspect]
     Active Substance: CYCLOPHOSPHAMIDE
     Indication: Plasma cell myeloma
     Dosage: CVD CHEMOTHERAPY: CONSISTING OF FOUR SERIES
     Route: 065
  3. BORTEZOMIB [Suspect]
     Active Substance: BORTEZOMIB
     Indication: Plasma cell myeloma
     Dosage: CVD CHEMOTHERAPY-FOUR SERIES
     Route: 065
  4. BORTEZOMIB [Suspect]
     Active Substance: BORTEZOMIB
     Dosage: RELAPSE TREATMENT: IN THE THIRD CYCLE, DEXAMETHASONE WAS ADDED
     Route: 065
  5. BORTEZOMIB [Suspect]
     Active Substance: BORTEZOMIB
     Dosage: SECOND MULTIPLE MYELOMA RELAPSE:
     Route: 065

REACTIONS (5)
  - Sickle cell anaemia with crisis [Recovering/Resolving]
  - Pulmonary hypertension [Recovering/Resolving]
  - Osteomyelitis [Unknown]
  - Dehydration [Unknown]
  - Swollen tongue [Unknown]
